FAERS Safety Report 6831755-4 (Version None)
Quarter: 2010Q3

REPORT INFORMATION
  Report Type: 
  Country: None (occurrence: None)
  Receive Date: 20100706
  Receipt Date: 20100622
  Transmission Date: 20110219
  Serious: Yes (Other)
  Sender: FDA-Public Use
  Company Number: WAES 1006USA04070

PATIENT
  Age: 68 Year
  Sex: Female

DRUGS (3)
  1. ZETIA [Suspect]
     Indication: HYPERCHOLESTEROLAEMIA
     Dosage: 5 MG/DAILY/ PO
     Route: 048
     Dates: start: 20090612
  2. NIFEDIPINE [Concomitant]
  3. PRAVASTATIN SODIUM [Concomitant]

REACTIONS (1)
  - BILIARY CIRRHOSIS PRIMARY [None]
